FAERS Safety Report 4764697-9 (Version None)
Quarter: 2005Q3

REPORT INFORMATION
  Report Type: 
  Country: None (occurrence: None)
  Receive Date: 20050907
  Receipt Date: 20050826
  Transmission Date: 20060218
  Serious: Yes (Hospitalization)
  Sender: FDA-Public Use
  Company Number: S05-USA-01042-01

PATIENT
  Age: 53 Year
  Sex: Male

DRUGS (8)
  1. LEXAPRO [Suspect]
     Indication: BIPOLAR DISORDER
     Dosage: 20 MG BID PO
     Route: 048
  2. LEXAPRO [Suspect]
     Indication: OBSESSIVE-COMPULSIVE DISORDER
     Dosage: 20 MG BID PO
     Route: 048
  3. LEXAPRO [Suspect]
     Indication: BIPOLAR DISORDER
     Dosage: 10 MG QD PO
     Route: 048
     Dates: start: 20030101, end: 20030101
  4. LEXAPRO [Suspect]
     Indication: OBSESSIVE-COMPULSIVE DISORDER
     Dosage: 10 MG QD PO
     Route: 048
     Dates: start: 20030101, end: 20030101
  5. LEXAPRO [Suspect]
     Indication: BIPOLAR DISORDER
     Dosage: 20 MG QD PO
     Route: 048
     Dates: start: 20030101
  6. TRILEPTAL [Concomitant]
  7. CRESTOR [Concomitant]
  8. HYDROCHLOROTHIAZIDE [Concomitant]
     Indication: OBSESSIVE-COMPULSIVE DISORDER

REACTIONS (8)
  - DEHYDRATION [None]
  - DIZZINESS [None]
  - DRY MOUTH [None]
  - ESCHERICHIA INFECTION [None]
  - NAUSEA [None]
  - THERAPEUTIC RESPONSE UNEXPECTED [None]
  - URINARY RETENTION [None]
  - UROSEPSIS [None]
